FAERS Safety Report 4989773-7 (Version None)
Quarter: 2006Q2

REPORT INFORMATION
  Report Type: 
  Country: None (occurrence: None)
  Receive Date: 20060503
  Receipt Date: 20060427
  Transmission Date: 20061013
  Serious: Yes (Death)
  Sender: FDA-Public Use
  Company Number: GB-SOLVAY-00306001417

PATIENT
  Age: 68 Year
  Sex: Female

DRUGS (5)
  1. BENDROFLUAZIDE [Concomitant]
     Indication: HYPERTENSION
     Dosage: DAILY DOSE:  UNKNOWN
     Route: 065
  2. MESALAZINE [Suspect]
     Indication: COLITIS ULCERATIVE
     Dosage: DAILY DOSE: 2400 MILLIGRAM(S)
     Route: 065
  3. HYDROCORTISONE [Suspect]
     Indication: COLITIS ULCERATIVE
     Dosage: DAILY DOSE: 400 MILLIGRAM(S)
     Route: 042
  4. LOSARTAN POTASSIUM [Concomitant]
     Indication: HYPERTENSION
     Dosage: DAILY DOSE:  UNKNOWN
     Route: 065
  5. LOW MOLECULAR WEIGHT HEPARIN [Suspect]
     Indication: COLITIS ULCERATIVE
     Dosage: DAILY DOSE:  UNKNOWN
     Route: 058

REACTIONS (1)
  - INTESTINAL INFARCTION [None]
